FAERS Safety Report 8912188 (Version 2)
Quarter: 2013Q1

REPORT INFORMATION
  Report Type: Spontaneous
  Country: PH (occurrence: PH)
  Receive Date: 20121115
  Receipt Date: 20130213
  Transmission Date: 20140127
  Serious: Yes (Death, Other)
  Sender: FDA-Public Use
  Company Number: PH-BAXTER-2012BAX021602

PATIENT
  Age: 64 Year
  Sex: Female

DRUGS (2)
  1. BUMINATE 25% [Suspect]
     Indication: PRODUCT USED FOR UNKNOWN INDICATION
     Route: 065
  2. LASIX [Suspect]
     Indication: PRODUCT USED FOR UNKNOWN INDICATION
     Route: 065

REACTIONS (9)
  - Cardiogenic shock [Fatal]
  - Coronary artery disease [Fatal]
  - Acute coronary syndrome [Fatal]
  - Angina unstable [Fatal]
  - Pericardial effusion malignant [Fatal]
  - Bronchial neoplasm [Fatal]
  - Chills [Unknown]
  - Pyrexia [Unknown]
  - Wrong technique in drug usage process [Unknown]
